FAERS Safety Report 11109717 (Version 1)
Quarter: 2015Q2

REPORT INFORMATION
  Report Type: Spontaneous
  Country: CO (occurrence: CO)
  Receive Date: 20150513
  Receipt Date: 20150513
  Transmission Date: 20150821
  Serious: Yes (Death, Hospitalization)
  Sender: FDA-Public Use
  Company Number: CO-JNJFOC-20150506365

PATIENT
  Age: 60 Year
  Sex: Male

DRUGS (1)
  1. REMICADE [Suspect]
     Active Substance: INFLIXIMAB
     Indication: RHEUMATOID ARTHRITIS
     Route: 042
     Dates: start: 20130219, end: 20141128

REACTIONS (4)
  - Respiratory failure [Fatal]
  - Coordination abnormal [Unknown]
  - Myocardial infarction [Fatal]
  - Nephropathy [Fatal]

NARRATIVE: CASE EVENT DATE: 20141017
